FAERS Safety Report 9549437 (Version 3)
Quarter: 2013Q4

REPORT INFORMATION
  Report Type: Report from Study
  Country: ES (occurrence: ES)
  Receive Date: 20130924
  Receipt Date: 20131009
  Transmission Date: 20140711
  Serious: Yes (Disabling, Other)
  Sender: FDA-Public Use
  Company Number: ES-BAYER-2013-115304

PATIENT
  Age: 89 Year
  Sex: Female

DRUGS (1)
  1. ADIRO 300 GASTRO-RESISTANT TABLETS EFG [Suspect]
     Indication: PROPHYLAXIS
     Dosage: 300 MG, UNK
     Route: 065
     Dates: start: 2013, end: 20130825

REACTIONS (3)
  - Thalamus haemorrhage [Recovered/Resolved with Sequelae]
  - Hemiplegia [Recovered/Resolved with Sequelae]
  - Dysarthria [Recovered/Resolved with Sequelae]
